FAERS Safety Report 8617136-1 (Version None)
Quarter: 2012Q3

REPORT INFORMATION
  Report Type: 
  Country: None (occurrence: None)
  Receive Date: 20120823
  Receipt Date: 20120817
  Transmission Date: 20120928
  Serious: Yes (Other)
  Sender: FDA-Public Use
  Company Number: US-PFIZER INC-2012182935

PATIENT
  Age: 48 Year
  Sex: Female
  Weight: 49.887 kg

DRUGS (2)
  1. LYRICA [Suspect]
     Indication: NERVE INJURY
     Dosage: UNK, DAILY
     Dates: start: 20120101, end: 20120101
  2. COMPAZINE [Suspect]
     Dosage: UNK

REACTIONS (10)
  - VISUAL IMPAIRMENT [None]
  - MUSCLE SPASMS [None]
  - NAUSEA [None]
  - DIZZINESS [None]
  - GAIT DISTURBANCE [None]
  - FATIGUE [None]
  - DRUG HYPERSENSITIVITY [None]
  - EYE SWELLING [None]
  - MALAISE [None]
  - VOMITING [None]
